FAERS Safety Report 9520937 (Version 4)
Quarter: 2013Q4

REPORT INFORMATION
  Report Type: Spontaneous
  Country: US (occurrence: US)
  Receive Date: 20130913
  Receipt Date: 20131121
  Transmission Date: 20140711
  Serious: No
  Sender: FDA-Public Use
  Company Number: US-PFIZER INC-2013262910

PATIENT
  Age: 64 Year
  Sex: Female
  Weight: 59.86 kg

DRUGS (4)
  1. LYRICA [Suspect]
     Indication: SCIATICA
     Dosage: 75 MG, 3X/DAY
     Route: 048
     Dates: start: 20130730, end: 201308
  2. LYRICA [Suspect]
     Indication: NERVE COMPRESSION
     Dosage: 75 MG, 4X/DAY
     Route: 048
     Dates: start: 201308, end: 201308
  3. LYRICA [Suspect]
     Indication: BACK DISORDER
     Dosage: 75 MG
  4. VALACYCLOVIR [Concomitant]
     Dosage: UNK

REACTIONS (9)
  - Off label use [Unknown]
  - Burning sensation [Recovering/Resolving]
  - Paraesthesia [Recovering/Resolving]
  - Hypoaesthesia [Recovering/Resolving]
  - Carpal tunnel syndrome [Recovering/Resolving]
  - Pain in extremity [Recovered/Resolved]
  - Insomnia [Unknown]
  - Pain [Unknown]
  - Local swelling [Unknown]
